FAERS Safety Report 23978602 (Version 1)
Quarter: 2024Q2

REPORT INFORMATION
  Report Type: Spontaneous
  Country: ZA (occurrence: None)
  Receive Date: 20240614
  Receipt Date: 20240614
  Transmission Date: 20240716
  Serious: Yes (Other)
  Sender: FDA-Public Use
  Company Number: 2024A125174

PATIENT
  Age: 71 Year
  Sex: Female

DRUGS (9)
  1. DAPAGLIFLOZIN [Suspect]
     Active Substance: DAPAGLIFLOZIN
     Indication: Diabetes mellitus
     Route: 048
  2. ZOLPIDEM TARTRATE [Concomitant]
     Active Substance: ZOLPIDEM TARTRATE
     Indication: African trypanosomiasis
  3. MONTELUKAST SODIUM [Concomitant]
     Active Substance: MONTELUKAST SODIUM
     Indication: Asthma
  4. PLENISH-K SR [Concomitant]
     Indication: Hypokalaemia
  5. FLUTICASONE FUROATE [Concomitant]
     Active Substance: FLUTICASONE FUROATE
     Indication: Hypersensitivity
  6. ALLERGEX ND [Concomitant]
     Indication: Hypersensitivity
  7. FEXO [Concomitant]
     Indication: Hypersensitivity
  8. DICLOFLAM B-CURRANT [Concomitant]
  9. SINUMAX ALLERGY [Concomitant]

REACTIONS (1)
  - Walking disability [Unknown]
